FAERS Safety Report 24745093 (Version 1)
Quarter: 2024Q4

REPORT INFORMATION
  Report Type: Other
  Country: FR (occurrence: FR)
  Receive Date: 20241217
  Receipt Date: 20241217
  Transmission Date: 20250114
  Serious: Yes (Other)
  Sender: HILL DERMACEUTICALS, INC.
  Company Number: FR-Hill Dermaceuticals, Inc.-2167323

PATIENT
  Sex: Female

DRUGS (1)
  1. FLUOROURACIL [Suspect]
     Active Substance: FLUOROURACIL
     Indication: Actinic keratosis

REACTIONS (1)
  - Cutaneous lupus erythematosus [Recovered/Resolved]
